FAERS Safety Report 23551588 (Version 1)
Quarter: 2024Q1

REPORT INFORMATION
  Report Type: Spontaneous
  Country: US (occurrence: US)
  Receive Date: 20240222
  Receipt Date: 20240222
  Transmission Date: 20240410
  Serious: Yes (Other)
  Sender: FDA-Public Use
  Company Number: US-STRIDES ARCOLAB LIMITED-2023SP016645

PATIENT

DRUGS (6)
  1. DOXORUBICIN [Suspect]
     Active Substance: DOXORUBICIN
     Indication: Renal neoplasm
     Dosage: 37.5 MILLIGRAM/SQ. METER, CYCLICAL (ON DAYS 1 AND 2) (VDC REGIMEN)
     Route: 042
  2. ETOPOSIDE [Suspect]
     Active Substance: ETOPOSIDE
     Indication: Renal neoplasm
     Dosage: 100 MILLIGRAM/SQ. METER, CYCLICAL (ON DAYS 2, 3 AND 4) (ICE REGIMEN)
     Route: 042
  3. CYCLOPHOSPHAMIDE [Suspect]
     Active Substance: CYCLOPHOSPHAMIDE
     Indication: Renal neoplasm
     Dosage: UNK, CYCLICAL (VDC REGIMEN ON DAY 1)
     Route: 042
  4. VINCRISTINE [Suspect]
     Active Substance: VINCRISTINE
     Indication: Renal neoplasm
     Dosage: 1.5 MILLIGRAM/SQ. METER, CYCLICAL (ON DAYS 1, 8 AND 15) (VDC REGIMEN)
     Route: 042
  5. CARBOPLATIN [Suspect]
     Active Substance: CARBOPLATIN
     Indication: Renal neoplasm
     Dosage: UNK, CYCLICAL (ICE REGIMEN ON DAY 1)
     Route: 042
  6. IFOSFAMIDE [Suspect]
     Active Substance: IFOSFAMIDE
     Indication: Renal neoplasm
     Dosage: 2000 MILLIGRAM/SQ. METER, CYCLICAL (ICE REGIMEN)
     Route: 042

REACTIONS (2)
  - Diarrhoea [Unknown]
  - Off label use [Unknown]
